FAERS Safety Report 6657018-8 (Version None)
Quarter: 2010Q1

REPORT INFORMATION
  Report Type: 
  Country: None (occurrence: None)
  Receive Date: 20100329
  Receipt Date: 20100329
  Transmission Date: 20100710
  Serious: Yes (Other)
  Sender: FDA-Public Use
  Company Number: None

PATIENT
  Age: 82 Year
  Sex: Female
  Weight: 67.586 kg

DRUGS (5)
  1. DIOVAN [Suspect]
     Indication: GLUCOSE TOLERANCE IMPAIRED
     Dosage: ON TABLET DAILY
     Dates: start: 20100109, end: 20100110
  2. DIOVAN [Suspect]
     Indication: HYPERTENSION
     Dosage: ON TABLET DAILY
     Dates: start: 20100109, end: 20100110
  3. AMLODIPINE [Concomitant]
  4. INDAPAMIDE [Concomitant]
  5. ALLOPURINOL [Concomitant]

REACTIONS (2)
  - HALLUCINATION, VISUAL [None]
  - SCREAMING [None]
